FAERS Safety Report 5922440-1 (Version None)
Quarter: 2008Q4

REPORT INFORMATION
  Report Type: 
  Country: None (occurrence: None)
  Receive Date: 20081008
  Receipt Date: 20081001
  Transmission Date: 20090506
  Serious: Yes (Other)
  Sender: FDA-Public Use
  Company Number: 200814122

PATIENT
  Age: 30 Year
  Sex: Male

DRUGS (2)
  1. VIVAGLOBIN [Suspect]
     Indication: IMMUNODEFICIENCY COMMON VARIABLE
     Dosage: SC
     Route: 058
     Dates: start: 20080901
  2. LAMICTAL [Concomitant]

REACTIONS (1)
  - MENINGITIS VIRAL [None]
